FAERS Safety Report 4523985-1 (Version None)
Quarter: 2004Q4

REPORT INFORMATION
  Report Type: 
  Country: None (occurrence: None)
  Receive Date: 20041209
  Receipt Date: 20041124
  Transmission Date: 20050328
  Serious: Yes (Hospitalization)
  Sender: FDA-Public Use
  Company Number: K200401568

PATIENT
  Age: 37 Year
  Sex: Female
  Weight: 105.2 kg

DRUGS (3)
  1. LEVOXYL [Suspect]
     Indication: HYPOTHYROIDISM
     Dosage: QD, ORAL
     Route: 048
     Dates: start: 19740101, end: 20040901
  2. LEVOXYL [Suspect]
     Indication: HYPOTHYROIDISM
     Dosage: QD, ORAL
     Route: 048
     Dates: start: 20040901
  3. ESRADERM PATCH [Concomitant]

REACTIONS (9)
  - BLOOD THYROID STIMULATING HORMONE INCREASED [None]
  - DRUG INEFFECTIVE [None]
  - DRUG INTOLERANCE [None]
  - HYPERHIDROSIS [None]
  - HYPOAESTHESIA [None]
  - HYPOTRICHOSIS [None]
  - MUSCULAR WEAKNESS [None]
  - NAUSEA [None]
  - RENAL FAILURE [None]
